FAERS Safety Report 4645462-X (Version None)
Quarter: 2005Q2

REPORT INFORMATION
  Report Type: 
  Country: None (occurrence: None)
  Receive Date: 20050425
  Receipt Date: 20050411
  Transmission Date: 20051028
  Serious: No
  Sender: FDA-Public Use
  Company Number: 2005UW04048

PATIENT
  Age: 89 Year
  Sex: Female

DRUGS (6)
  1. ARIMIDEX [Suspect]
     Indication: BREAST CANCER
     Dosage: 1 MG PO
     Route: 048
     Dates: start: 20040930
  2. DIOVAN [Concomitant]
  3. LIPITOR [Concomitant]
  4. NITROGLYCERIN [Concomitant]
  5. LOSEC [Concomitant]
  6. ELTROXIN [Concomitant]

REACTIONS (1)
  - CATARACT [None]
